FAERS Safety Report 12270901 (Version 1)
Quarter: 2016Q2

REPORT INFORMATION
  Report Type: Spontaneous
  Country: US (occurrence: US)
  Receive Date: 20160415
  Receipt Date: 20160415
  Transmission Date: 20160815
  Serious: No
  Sender: FDA-Public Use
  Company Number: US-TEVA-645468ACC

PATIENT
  Age: 24 Year
  Sex: Female
  Weight: 58.11 kg

DRUGS (3)
  1. PRENATAL VITAMIN [Concomitant]
     Active Substance: VITAMINS
     Indication: NUTRITIONAL SUPPLEMENTATION
  2. PARAGARD T 380A [Suspect]
     Active Substance: COPPER
     Indication: CONTRACEPTION
     Dates: start: 20160308, end: 20160316
  3. NOR-Q D [Concomitant]
     Indication: ORAL CONTRACEPTION

REACTIONS (3)
  - Exposure during breast feeding [Unknown]
  - Abdominal pain lower [Unknown]
  - Device expulsion [Recovered/Resolved]

NARRATIVE: CASE EVENT DATE: 20160309
